FAERS Safety Report 24856166 (Version 1)
Quarter: 2025Q1

REPORT INFORMATION
  Report Type: Spontaneous
  Country: IT (occurrence: IT)
  Receive Date: 20250117
  Receipt Date: 20250117
  Transmission Date: 20250409
  Serious: Yes (Hospitalization)
  Sender: FRESENIUS KABI
  Company Number: None

PATIENT
  Age: 66 Year
  Sex: Female
  Weight: 65 kg

DRUGS (3)
  1. PIPERACILLIN SODIUM\TAZOBACTAM SODIUM [Suspect]
     Active Substance: PIPERACILLIN SODIUM\TAZOBACTAM SODIUM
     Indication: Product used for unknown indication
     Dosage: 4.5 GRAMS 4 TIMES A DAY?DISPERSION FOR INJECTION/INFUSION
     Dates: start: 20241129, end: 20241205
  2. LEVETIRACETAM [Suspect]
     Active Substance: LEVETIRACETAM
     Indication: Epilepsy
     Dosage: SOLUTION FOR INJECTION
     Route: 042
     Dates: start: 20241118, end: 20241130
  3. DEURSIL [Suspect]
     Active Substance: URSODIOL
     Indication: Product used for unknown indication
     Dates: start: 20241110, end: 20241207

REACTIONS (2)
  - Epidermolysis bullosa [Not Recovered/Not Resolved]
  - Toxic epidermal necrolysis [Not Recovered/Not Resolved]

NARRATIVE: CASE EVENT DATE: 20241203
